FAERS Safety Report 17909126 (Version 11)
Quarter: 2023Q1

REPORT INFORMATION
  Report Type: Spontaneous
  Country: CA (occurrence: CA)
  Receive Date: 20200617
  Receipt Date: 20230317
  Transmission Date: 20230418
  Serious: Yes (Hospitalization, Other)
  Sender: FDA-Public Use
  Company Number: CA-BRISTOL-MYERS SQUIBB COMPANY-BMS-2020-046445

PATIENT
  Sex: Male

DRUGS (50)
  1. APIXABAN [Suspect]
     Active Substance: APIXABAN
     Indication: Product used for unknown indication
  2. APIXABAN [Suspect]
     Active Substance: APIXABAN
  3. APIXABAN [Suspect]
     Active Substance: APIXABAN
  4. SPIRONOLACTONE AND HYDROCHLOROTHIAZIDE [Concomitant]
     Active Substance: HYDROCHLOROTHIAZIDE\SPIRONOLACTONE
     Indication: Product used for unknown indication
  5. SPIRONOLACTONE AND HYDROCHLOROTHIAZIDE [Concomitant]
     Active Substance: HYDROCHLOROTHIAZIDE\SPIRONOLACTONE
  6. SPIRONOLACTONE AND HYDROCHLOROTHIAZIDE [Concomitant]
     Active Substance: HYDROCHLOROTHIAZIDE\SPIRONOLACTONE
  7. AMIODARONE HYDROCHLORIDE [Concomitant]
     Active Substance: AMIODARONE HYDROCHLORIDE
     Indication: Product used for unknown indication
  8. AMIODARONE HYDROCHLORIDE [Concomitant]
     Active Substance: AMIODARONE HYDROCHLORIDE
  9. COSENTYX [Concomitant]
     Active Substance: SECUKINUMAB
     Indication: Psoriatic arthropathy
  10. COSENTYX [Concomitant]
     Active Substance: SECUKINUMAB
  11. COSENTYX [Concomitant]
     Active Substance: SECUKINUMAB
  12. ENBREL [Concomitant]
     Active Substance: ETANERCEPT
     Indication: Psoriatic arthropathy
  13. ENBREL [Concomitant]
     Active Substance: ETANERCEPT
  14. ENBREL [Concomitant]
     Active Substance: ETANERCEPT
  15. METHOTREXATE SODIUM [Concomitant]
     Active Substance: METHOTREXATE SODIUM
     Indication: Psoriatic arthropathy
     Route: 058
  16. SULFASALAZINE [Concomitant]
     Active Substance: SULFASALAZINE
     Indication: Product used for unknown indication
  17. SULFASALAZINE [Concomitant]
     Active Substance: SULFASALAZINE
  18. SULFASALAZINE [Concomitant]
     Active Substance: SULFASALAZINE
  19. TALTZ [Concomitant]
     Active Substance: IXEKIZUMAB
     Indication: Psoriatic arthropathy
  20. TALTZ [Concomitant]
     Active Substance: IXEKIZUMAB
  21. TALTZ [Concomitant]
     Active Substance: IXEKIZUMAB
  22. FOLIC ACID [Concomitant]
     Active Substance: FOLIC ACID
     Indication: Product used for unknown indication
  23. FOLIC ACID [Concomitant]
     Active Substance: FOLIC ACID
  24. FOLIC ACID [Concomitant]
     Active Substance: FOLIC ACID
  25. LASIX [Concomitant]
     Active Substance: FUROSEMIDE
     Indication: Product used for unknown indication
  26. LASIX [Concomitant]
     Active Substance: FUROSEMIDE
  27. LASIX [Concomitant]
     Active Substance: FUROSEMIDE
  28. METOPROLOL TARTRATE [Concomitant]
     Active Substance: METOPROLOL TARTRATE
     Indication: Product used for unknown indication
  29. METOPROLOL TARTRATE [Concomitant]
     Active Substance: METOPROLOL TARTRATE
  30. METOPROLOL TARTRATE [Concomitant]
     Active Substance: METOPROLOL TARTRATE
  31. OMEPRAZOLE [Concomitant]
     Active Substance: OMEPRAZOLE
     Indication: Product used for unknown indication
  32. OMEPRAZOLE [Concomitant]
     Active Substance: OMEPRAZOLE
  33. OMEPRAZOLE [Concomitant]
     Active Substance: OMEPRAZOLE
  34. HYDROXYCHLOROQUINE SULFATE [Concomitant]
     Active Substance: HYDROXYCHLOROQUINE SULFATE
     Indication: Psoriatic arthropathy
  35. HYDROXYCHLOROQUINE SULFATE [Concomitant]
     Active Substance: HYDROXYCHLOROQUINE SULFATE
  36. HYDROXYCHLOROQUINE SULFATE [Concomitant]
     Active Substance: HYDROXYCHLOROQUINE SULFATE
  37. PREDNISONE [Concomitant]
     Active Substance: PREDNISONE
     Indication: Psoriatic arthropathy
     Route: 058
  38. PREDNISONE [Concomitant]
     Active Substance: PREDNISONE
     Route: 058
  39. PREDNISONE [Concomitant]
     Active Substance: PREDNISONE
  40. RAMIPRIL [Concomitant]
     Active Substance: RAMIPRIL
     Indication: Psoriatic arthropathy
  41. RAMIPRIL [Concomitant]
     Active Substance: RAMIPRIL
  42. RAMIPRIL [Concomitant]
     Active Substance: RAMIPRIL
  43. IXEKIZUMAB [Concomitant]
     Active Substance: IXEKIZUMAB
     Indication: Psoriatic arthropathy
  44. IXEKIZUMAB [Concomitant]
     Active Substance: IXEKIZUMAB
  45. IXEKIZUMAB [Concomitant]
     Active Substance: IXEKIZUMAB
  46. METHOTREXATE [Concomitant]
     Active Substance: METHOTREXATE
     Indication: Psoriatic arthropathy
     Route: 058
  47. METHOTREXATE [Concomitant]
     Active Substance: METHOTREXATE
     Route: 058
  48. METHOTREXATE [Concomitant]
     Active Substance: METHOTREXATE
     Route: 058
  49. SPIRONOLACTONE [Concomitant]
     Active Substance: SPIRONOLACTONE
     Indication: Product used for unknown indication
  50. SPIRONOLACTONE [Concomitant]
     Active Substance: SPIRONOLACTONE

REACTIONS (4)
  - Ejection fraction decreased [Unknown]
  - Cardiac failure congestive [Unknown]
  - Off label use [Unknown]
  - Hospitalisation [Unknown]
